FAERS Safety Report 16445531 (Version 3)
Quarter: 2019Q3

REPORT INFORMATION
  Report Type: Spontaneous
  Country: US (occurrence: US)
  Receive Date: 20190618
  Receipt Date: 20190814
  Transmission Date: 20191004
  Serious: No
  Sender: FDA-Public Use
  Company Number: US-PFIZER INC-2019259314

PATIENT
  Age: 68 Year
  Sex: Female

DRUGS (1)
  1. XELJANZ XR [Suspect]
     Active Substance: TOFACITINIB CITRATE
     Dosage: 11 MG
     Dates: start: 201905

REACTIONS (6)
  - Nausea [Unknown]
  - Foot deformity [Unknown]
  - Headache [Unknown]
  - Abdominal pain [Unknown]
  - Dyspepsia [Unknown]
  - Peripheral coldness [Unknown]
